FAERS Safety Report 9716899 (Version 1)
Quarter: 2013Q4

REPORT INFORMATION
  Report Type: Spontaneous
  Country: US (occurrence: US)
  Receive Date: 20131127
  Receipt Date: 20131127
  Transmission Date: 20140711
  Serious: No
  Sender: FDA-Public Use
  Company Number: US-GILEAD-2009-0019903

PATIENT
  Age: 77 Year
  Sex: Male
  Weight: 72.57 kg

DRUGS (18)
  1. LETAIRIS [Suspect]
     Indication: PULMONARY ARTERIAL HYPERTENSION
     Route: 048
     Dates: start: 20081231, end: 20090112
  2. REVATIO [Concomitant]
  3. WARFARIN [Concomitant]
  4. LASIX [Concomitant]
  5. PRINIVIL [Concomitant]
  6. OXYGEN [Concomitant]
  7. TOPROL XL [Concomitant]
  8. SYNTHROID [Concomitant]
  9. PROTONIX [Concomitant]
  10. AMBIEN [Concomitant]
  11. ZOLOFT [Concomitant]
  12. PREDNISONE [Concomitant]
  13. LESCOL XL [Concomitant]
  14. K-DUR [Concomitant]
  15. FERROUS GLUCONATE [Concomitant]
  16. FOLTX [Concomitant]
  17. ACTOS [Concomitant]
  18. PLAQUENIL [Concomitant]

REACTIONS (5)
  - Neck pain [Unknown]
  - Feeling abnormal [Unknown]
  - Rhinorrhoea [Unknown]
  - Wheezing [Unknown]
  - Headache [Unknown]
